FAERS Safety Report 24104751 (Version 4)
Quarter: 2024Q3

REPORT INFORMATION
  Report Type: Spontaneous
  Country: NL (occurrence: NL)
  Receive Date: 20240717
  Receipt Date: 20240820
  Transmission Date: 20241016
  Serious: Yes (Hospitalization, Other)
  Sender: MERCK
  Company Number: NL-BRISTOL-MYERS SQUIBB COMPANY-2024-108846

PATIENT
  Age: 74 Year
  Sex: Male
  Weight: 89.3 kg

DRUGS (7)
  1. PEMBROLIZUMAB [Suspect]
     Active Substance: PEMBROLIZUMAB
     Indication: Non-small cell lung cancer
     Dosage: 200 MILLIGRAM(S) 1 EVERY 3 WEEK (Q3W)
     Route: 048
     Dates: start: 20211208
  2. PEMBROLIZUMAB [Suspect]
     Active Substance: PEMBROLIZUMAB
     Dosage: 400 MG, 1 IN 6 WEEKS; CYCLE 34
     Route: 048
     Dates: end: 20231109
  3. ADAGRASIB [Suspect]
     Active Substance: ADAGRASIB
     Indication: Non-small cell lung cancer
     Dosage: 400 MILLIGRAM(S) 2 EVERY 1 DAY (BID); LAST DOSE: CYCLE 44
     Route: 048
     Dates: start: 20211208, end: 20240707
  4. HYDROCHLOROTHIAZIDE [Concomitant]
     Active Substance: HYDROCHLOROTHIAZIDE
     Indication: Hypertension
     Dosage: 12.5 MILLIGRAM
     Route: 048
     Dates: start: 20210514
  5. LISINOPRIL [Concomitant]
     Active Substance: LISINOPRIL
     Indication: Hypertension
     Dosage: 5 MILLIGRAM
     Route: 048
     Dates: start: 20210528
  6. TAMSULOSIN [Concomitant]
     Active Substance: TAMSULOSIN
     Indication: Benign prostatic hyperplasia
     Dosage: 0.4 MILLIGRAM
     Route: 048
     Dates: start: 20220417
  7. ROSUVASTATIN [Concomitant]
     Active Substance: ROSUVASTATIN\ROSUVASTATIN CALCIUM
     Indication: Hypercholesterolaemia
     Dosage: 10 MILLIGRAM
     Route: 048
     Dates: start: 20211223, end: 20240707

REACTIONS (3)
  - Large intestine perforation [Recovered/Resolved]
  - Malignant neoplasm progression [Unknown]
  - Product use issue [Unknown]

NARRATIVE: CASE EVENT DATE: 20211208
